FAERS Safety Report 5491429-1 (Version None)
Quarter: 2007Q4

REPORT INFORMATION
  Report Type: 
  Country: None (occurrence: None)
  Receive Date: 20071018
  Receipt Date: 20071010
  Transmission Date: 20080405
  Serious: Yes (Hospitalization)
  Sender: FDA-Public Use
  Company Number: 028-C5013-07051501

PATIENT
  Age: 47 Year
  Sex: Male
  Weight: 72.8 kg

DRUGS (4)
  1. CC-5013 (LENALIDOMIDE) (CAPSULES) [Suspect]
     Indication: MULTIPLE MYELOMA
     Dosage: 25 MG, QD, ORAL
     Route: 048
     Dates: start: 20060613, end: 20070101
  2. DEXAMETHASONE TAB [Suspect]
     Indication: MULTIPLE MYELOMA
     Dosage: 40 MG, DAYS 1-4, 9-12, 17-20
     Dates: start: 20060613
  3. VINCRISTINE [Concomitant]
  4. ADRIAMYCIN PFS [Concomitant]

REACTIONS (21)
  - ANAEMIA [None]
  - ASTHENIA [None]
  - ATRIAL FIBRILLATION [None]
  - BACTERIAL INFECTION [None]
  - BLOOD CULTURE POSITIVE [None]
  - DELIRIUM [None]
  - DEPRESSED LEVEL OF CONSCIOUSNESS [None]
  - EMBOLISM VENOUS [None]
  - ENTEROCOCCAL INFECTION [None]
  - FEBRILE NEUTROPENIA [None]
  - FUNGAL INFECTION [None]
  - FUNGAL SEPSIS [None]
  - INFECTION IN AN IMMUNOCOMPROMISED HOST [None]
  - IRITIS [None]
  - LETHARGY [None]
  - LUNG CONSOLIDATION [None]
  - PNEUMONIA [None]
  - RASH ERYTHEMATOUS [None]
  - SINUS CONGESTION [None]
  - TACHYCARDIA [None]
  - THROMBOCYTOPENIA [None]
